FAERS Safety Report 8083561-3 (Version None)
Quarter: 2012Q1

REPORT INFORMATION
  Report Type: 
  Country: None (occurrence: None)
  Receive Date: 20120127
  Receipt Date: 20110115
  Transmission Date: 20120608
  Serious: Yes (Other)
  Sender: FDA-Public Use
  Company Number: US-ABBOTT-11P-163-0698383-00

PATIENT
  Age: 58 Year
  Sex: Female

DRUGS (28)
  1. FLEXERIL [Concomitant]
     Indication: PRODUCT USED FOR UNKNOWN INDICATION
  2. FENTANYL [Concomitant]
     Indication: PAIN
     Route: 062
  3. ATARAX [Concomitant]
     Indication: PRURITUS
  4. ACYCLOVIR [Concomitant]
     Indication: HERPES ZOSTER
  5. SPIRONOLACTONE [Concomitant]
     Indication: CUTANEOUS LUPUS ERYTHEMATOSUS
  6. MORPHINE SULFATE [Concomitant]
     Indication: PAIN
  7. ATARAX [Concomitant]
     Indication: CUTANEOUS LUPUS ERYTHEMATOSUS
  8. CYMBALTA [Concomitant]
     Indication: DEPRESSION
  9. PE202STE [Concomitant]
     Indication: HORMONE THERAPY
  10. ARMODAFINIL [Concomitant]
     Indication: FUNGAL INFECTION
  11. SILVER SULFA DIAZIME CREAM [Concomitant]
     Indication: CUTANEOUS LUPUS ERYTHEMATOSUS
  12. K2 [Concomitant]
     Indication: PRODUCT USED FOR UNKNOWN INDICATION
  13. PRASTERONE [Concomitant]
     Indication: PRODUCT USED FOR UNKNOWN INDICATION
     Route: 060
  14. CHELEATED K [Concomitant]
     Indication: PRODUCT USED FOR UNKNOWN INDICATION
  15. ULTRA INDINOPLUS [Concomitant]
     Indication: PRODUCT USED FOR UNKNOWN INDICATION
  16. EVOXAC [Concomitant]
     Indication: SJOGREN'S SYNDROME
  17. RITALIN-SR [Concomitant]
     Indication: ATTENTION DEFICIT/HYPERACTIVITY DISORDER
  18. AMBIEN [Concomitant]
     Indication: INSOMNIA
  19. MELATONIN [Concomitant]
     Indication: INSOMNIA
  20. SPIRONOLACTONE [Concomitant]
     Indication: HAIR GROWTH ABNORMAL
  21. PROTONIX [Concomitant]
     Indication: OESOPHAGEAL SPASM
  22. ONDANSETRON HCL [Concomitant]
     Indication: NAUSEA
  23. VITAMIN D [Concomitant]
     Indication: PRODUCT USED FOR UNKNOWN INDICATION
  24. AMOXICILLIN [Concomitant]
     Indication: DENTAL DISORDER PROPHYLAXIS
  25. ADRENPLUS 300 [Concomitant]
     Indication: PRODUCT USED FOR UNKNOWN INDICATION
  26. HUMIRA [Suspect]
     Indication: RHEUMATOID ARTHRITIS
     Dates: start: 20100601
  27. LASIX [Concomitant]
     Indication: FLUID RETENTION
  28. NEURONTIN [Concomitant]
     Indication: PAIN

REACTIONS (6)
  - WRIST FRACTURE [None]
  - RADIUS FRACTURE [None]
  - ADRENAL INSUFFICIENCY [None]
  - ULNA FRACTURE [None]
  - FALL [None]
  - RHEUMATOID ARTHRITIS [None]
